FAERS Safety Report 7982106-3 (Version None)
Quarter: 2011Q4

REPORT INFORMATION
  Report Type: 
  Country: None (occurrence: None)
  Receive Date: 20111215
  Receipt Date: 20111209
  Transmission Date: 20120403
  Serious: Yes (Other)
  Sender: FDA-Public Use
  Company Number: GB-TEVA-312885ISR

PATIENT
  Age: 57 Year
  Sex: Female

DRUGS (1)
  1. BACLOFEN [Suspect]

REACTIONS (1)
  - MULTIPLE SCLEROSIS RELAPSE [None]
